FAERS Safety Report 9948954 (Version 1)
Quarter: 2014Q1

REPORT INFORMATION
  Report Type: Spontaneous
  Country: US (occurrence: None)
  Receive Date: 20140122
  Receipt Date: 20140122
  Transmission Date: 20141002
  Serious: Yes (Other)
  Sender: FDA-Public Use
  Company Number: AEGR000219

PATIENT
  Age: 56 Year
  Sex: Female
  Weight: 93 kg

DRUGS (4)
  1. JUXTAPID [Suspect]
     Indication: TYPE IIA HYPERLIPIDAEMIA
     Route: 048
     Dates: start: 20131115
  2. AZOR (AMLODIPINE BESILATE, OLMESARTAN MEDOXOMIL) [Concomitant]
  3. CANAGLIFLOZIN (CANAGLIFLOZIN) [Concomitant]
  4. NEXIUM (ESOMEPRAZOLE MAGNESIUM) [Concomitant]

REACTIONS (2)
  - Diarrhoea [None]
  - Dyspepsia [None]
